FAERS Safety Report 8326136-0 (Version None)
Quarter: 2012Q2

REPORT INFORMATION
  Report Type: 
  Country: None (occurrence: None)
  Receive Date: 20120501
  Receipt Date: 20120419
  Transmission Date: 20120825
  Serious: Yes (Death)
  Sender: FDA-Public Use
  Company Number: JP-ROCHE-1040558

PATIENT
  Sex: Male
  Weight: 60 kg

DRUGS (8)
  1. IDARUBICIN HYDROCHLORIDE [Concomitant]
     Indication: ACUTE PROMYELOCYTIC LEUKAEMIA
     Route: 042
     Dates: start: 20020614, end: 20020616
  2. VESANOID [Suspect]
     Indication: ACUTE PROMYELOCYTIC LEUKAEMIA
     Route: 048
     Dates: start: 20020607
  3. IDARUBICIN HYDROCHLORIDE [Concomitant]
     Route: 042
     Dates: start: 20020620, end: 20020620
  4. MERCAPTOPURINE [Concomitant]
     Indication: ACUTE PROMYELOCYTIC LEUKAEMIA
     Route: 048
     Dates: start: 20020614, end: 20060620
  5. IDARUBICIN HYDROCHLORIDE [Concomitant]
     Route: 042
     Dates: start: 20020618, end: 20020618
  6. IDARUBICIN HYDROCHLORIDE [Concomitant]
     Route: 042
     Dates: start: 20020616, end: 20020616
  7. PREDNISOLONE [Concomitant]
     Indication: ACUTE PROMYELOCYTIC LEUKAEMIA
     Dates: start: 20020614, end: 20020620
  8. ENOCITABINE [Concomitant]
     Indication: ACUTE PROMYELOCYTIC LEUKAEMIA
     Route: 041
     Dates: start: 20020614, end: 20020620

REACTIONS (1)
  - INTERSTITIAL LUNG DISEASE [None]
